FAERS Safety Report 8132409-7 (Version None)
Quarter: 2012Q1

REPORT INFORMATION
  Report Type: 
  Country: None (occurrence: None)
  Receive Date: 20120213
  Receipt Date: 20120131
  Transmission Date: 20120608
  Serious: Yes (Hospitalization, Other)
  Sender: FDA-Public Use
  Company Number: US-ELI_LILLY_AND_COMPANY-US201007005839

PATIENT
  Sex: Female

DRUGS (20)
  1. FOLTX [Concomitant]
     Dosage: UNK, QD
  2. PRAVASTATIN [Concomitant]
     Dosage: UNK, QD
  3. PRAVACHOL [Concomitant]
  4. LISINOPRIL [Concomitant]
     Dosage: UNK, QD
  5. COUMADIN [Concomitant]
     Dosage: 4 MG, QD
  6. ASPIRIN [Concomitant]
  7. FAMOTIDINE [Concomitant]
     Dosage: UNK, QD
  8. BISOPROLOL [Concomitant]
     Dosage: UNK, QD
  9. ASPIRIN [Concomitant]
  10. NITROGLYCERIN [Concomitant]
     Dosage: UNK, PRN
  11. CALCIUM W/VITAMIN D NOS [Concomitant]
     Dosage: UNK, QD
  12. ALPRAZOLAM [Concomitant]
     Dosage: UNK, PRN
  13. DOCUSATE [Concomitant]
     Indication: ABNORMAL FAECES
     Dosage: UNK, QD
  14. LASIX [Concomitant]
  15. MEGESTROL ACETATE [Concomitant]
  16. TYLENOL                                 /SCH/ [Concomitant]
     Indication: PAIN
     Dosage: UNK, PRN
  17. CALCIUM CARBONATE [Concomitant]
  18. FOLIC ACID [Concomitant]
  19. FORTEO [Suspect]
     Indication: OSTEOPOROSIS
     Dosage: 20 UG, DAILY (1/D)
  20. NITROGLYCERIN [Concomitant]

REACTIONS (7)
  - POST PROCEDURAL COMPLICATION [None]
  - AORTIC VALVE STENOSIS [None]
  - FUNCTIONAL GASTROINTESTINAL DISORDER [None]
  - ARTERIOSCLEROSIS [None]
  - CORONARY ARTERY DISEASE [None]
  - HEARING IMPAIRED [None]
  - DIARRHOEA [None]
